FAERS Safety Report 6307028-5 (Version None)
Quarter: 2009Q3

REPORT INFORMATION
  Report Type: 
  Country: None (occurrence: None)
  Receive Date: 20090812
  Receipt Date: 20090730
  Transmission Date: 20100115
  Serious: Yes (Other)
  Sender: FDA-Public Use
  Company Number: PHHY2009BR31839

PATIENT
  Sex: Female
  Weight: 70 kg

DRUGS (13)
  1. DIOVAN AMLO FIX [Suspect]
     Indication: HYPERTENSION
     Dosage: 2 TABLET (320/5 MG) PER DAY
     Route: 048
     Dates: start: 20080701
  2. DIOVAN AMLO FIX [Suspect]
     Dosage: 1 TABLET/DAY
  3. CARBAMAZEPINE [Suspect]
     Indication: CONVULSION
     Dosage: 200 MG, UNK
     Route: 048
     Dates: start: 20090101
  4. DALMADORM [Concomitant]
     Indication: SLEEP DISORDER
     Dosage: 1/2 TABLET AT NIGHT
     Route: 048
  5. CAPTOPRIL [Concomitant]
     Indication: HYPERTENSION
     Dosage: 1 TABLET PER DAY
     Route: 048
     Dates: start: 20060101
  6. ADALAT - SLOW RELEASE [Concomitant]
     Indication: HYPERTENSION
     Dosage: 1 TABLET PER DAY
     Route: 048
  7. TEGRETOL [Concomitant]
     Indication: CONVULSION
     Dosage: 2 TABLETS AT NIGHT
     Route: 048
     Dates: start: 20050101, end: 20090101
  8. SIMVASTATIN [Concomitant]
     Indication: BLOOD CHOLESTEROL
     Dosage: 1 TABLET AT NIGHT
     Route: 048
  9. SIMVASTATIN [Concomitant]
     Indication: BLOOD TRIGLYCERIDES INCREASED
  10. GLUCOSAMINE W/CHONDROITIN [Concomitant]
     Indication: OSTEOARTHRITIS
     Dosage: 1 DF, Q12H
     Route: 048
     Dates: start: 20090630
  11. MONOCORDIL [Concomitant]
     Indication: CARDIAC DISORDER
     Dosage: 1 TABLET A DAY
     Route: 048
  12. INSULIN RAPID [Concomitant]
     Dosage: 20 IU AT MORNING AND NIGHT
     Route: 058
     Dates: start: 20020101
  13. HUMAN-INSULIN [Concomitant]
     Indication: DIABETES MELLITUS
     Dosage: 60 IU MORNING AND 50 IU NIGHT
     Route: 058
     Dates: start: 20020101

REACTIONS (13)
  - ABDOMINAL PAIN UPPER [None]
  - CARDIOMEGALY [None]
  - CHEST PAIN [None]
  - DYSPEPSIA [None]
  - FEELING ABNORMAL [None]
  - HEART RATE INCREASED [None]
  - HEPATOMEGALY [None]
  - HEPATOTOXICITY [None]
  - HYPOAESTHESIA [None]
  - JOINT SWELLING [None]
  - NAUSEA [None]
  - OEDEMA PERIPHERAL [None]
  - POLLAKIURIA [None]
